FAERS Safety Report 12283029 (Version 1)
Quarter: 2016Q2

REPORT INFORMATION
  Report Type: Spontaneous
  Country: None (occurrence: None)
  Receive Date: 20160419
  Receipt Date: 20160419
  Transmission Date: 20160815
  Serious: No
  Sender: FDA-Public Use
  Company Number: EU-B. BRAUN MEDICAL INC.-1050738

PATIENT
  Age: 41 Year
  Sex: Male

DRUGS (2)
  1. POTASSIUM CHLORIDE FOR INJECTION CONCENTRATE USP 0264-1940-20 [Suspect]
     Active Substance: POTASSIUM CHLORIDE
     Route: 042
  2. AMIODARONE HCL [Concomitant]

REACTIONS (1)
  - Injection site phlebitis [Recovered/Resolved]
